FAERS Safety Report 25593097 (Version 1)
Quarter: 2025Q3

REPORT INFORMATION
  Report Type: Spontaneous
  Country: US (occurrence: US)
  Receive Date: 20250722
  Receipt Date: 20250722
  Transmission Date: 20251021
  Serious: No
  Sender: Pangea Pharmaceuticals
  Company Number: US-PANGEAPHARMA-2025PAN00009

PATIENT
  Age: 73 Year
  Sex: Female

DRUGS (3)
  1. OXAPROZIN [Suspect]
     Active Substance: OXAPROZIN
     Indication: Arthralgia
     Route: 065
     Dates: start: 2025, end: 2025
  2. KEVZARA [Suspect]
     Active Substance: SARILUMAB
     Indication: Rheumatoid arthritis
     Route: 058
     Dates: start: 202503
  3. ORENCIA [Concomitant]
     Active Substance: ABATACEPT
     Indication: Product used for unknown indication

REACTIONS (2)
  - Abdominal pain upper [Unknown]
  - Diarrhoea [Unknown]

NARRATIVE: CASE EVENT DATE: 20250101
